FAERS Safety Report 8335235-9 (Version None)
Quarter: 2012Q2

REPORT INFORMATION
  Report Type: 
  Country: None (occurrence: None)
  Receive Date: 20120503
  Receipt Date: 20120423
  Transmission Date: 20120825
  Serious: Yes (Death, Life-Threatening, Hospitalization)
  Sender: FDA-Public Use
  Company Number: PL-CELGENEUS-129-C5013-11022486

PATIENT
  Sex: Male
  Weight: 91 kg

DRUGS (17)
  1. POLOCARD [Concomitant]
     Route: 065
     Dates: start: 20110203, end: 20110206
  2. BERODUAL [Concomitant]
     Route: 065
     Dates: start: 20110203, end: 20110206
  3. SODIUM CHLORIDE [Concomitant]
     Route: 065
     Dates: start: 20110203, end: 20110206
  4. DOPAMINE HCL [Concomitant]
     Route: 065
     Dates: start: 20110203, end: 20110206
  5. MUCOSOLVAN [Concomitant]
     Route: 065
     Dates: start: 20110203, end: 20110206
  6. TARCEFOKSYM [Concomitant]
     Route: 065
     Dates: start: 20110203, end: 20110206
  7. OMEPRAZOLE [Concomitant]
     Route: 065
     Dates: start: 20110203, end: 20110206
  8. ATORIS [Concomitant]
     Dosage: 40 MILLIGRAM
     Route: 048
     Dates: start: 20100819
  9. FUROSEMIDE [Concomitant]
     Route: 065
     Dates: start: 20110203, end: 20110206
  10. CYCLONAMINE [Concomitant]
     Route: 065
     Dates: start: 20110203, end: 20110206
  11. PLAVIX [Concomitant]
     Dosage: 75 MILLIGRAM
     Route: 048
     Dates: start: 20100821
  12. ENOXAPARIN SODIUM [Concomitant]
     Route: 065
     Dates: start: 20110203, end: 20110206
  13. LENALIDOMIDE [Suspect]
     Dosage: 5 MILLIGRAM
     Route: 048
     Dates: start: 20110726
  14. POLOCARD [Concomitant]
     Dosage: 75 MILLIGRAM
     Route: 048
     Dates: start: 20100821
  15. METOPROLOL SUCCINATE [Concomitant]
     Dosage: 25 MILLIGRAM
     Route: 048
     Dates: start: 20100819
  16. LENALIDOMIDE [Suspect]
     Dosage: 10 MILLIGRAM
     Route: 048
     Dates: start: 20120119, end: 20120204
  17. KALIPOZ [Concomitant]
     Route: 065
     Dates: start: 20110203, end: 20110206

REACTIONS (7)
  - ANAEMIA [None]
  - CARDIOPULMONARY FAILURE [None]
  - CORONARY ARTERY DISEASE [None]
  - RENAL FAILURE [None]
  - CARDIOGENIC SHOCK [None]
  - CARDIAC ARREST [None]
  - PNEUMONIA [None]
